FAERS Safety Report 4294415-2 (Version None)
Quarter: 2004Q1

REPORT INFORMATION
  Report Type: 
  Country: None (occurrence: None)
  Receive Date: 20040211
  Receipt Date: 20040202
  Transmission Date: 20041129
  Serious: No
  Sender: FDA-Public Use
  Company Number: 2003UW16210

PATIENT
  Age: 59 Year
  Sex: Male
  Weight: 56.6996 kg

DRUGS (4)
  1. PRILOSEC [Suspect]
     Dates: start: 19900101
  2. PRILOSEC [Suspect]
     Indication: GASTROOESOPHAGEAL REFLUX DISEASE
     Dosage: 1 DF DAILY PO
     Route: 048
     Dates: start: 20031110, end: 20031208
  3. ATIVAN [Concomitant]
  4. FLONASE [Concomitant]

REACTIONS (1)
  - OESOPHAGEAL POLYP [None]
